FAERS Safety Report 14489749 (Version 7)
Quarter: 2018Q3

REPORT INFORMATION
  Report Type: Spontaneous
  Country: AU (occurrence: AU)
  Receive Date: 20180205
  Receipt Date: 20180807
  Transmission Date: 20181010
  Serious: Yes (Hospitalization, Other)
  Sender: FDA-Public Use
  Company Number: AU-ALEXION-A201800920

PATIENT
  Age: 23 Year
  Sex: Male

DRUGS (12)
  1. MOVICOL [Concomitant]
     Active Substance: POLYETHYLENE GLYCOL 3350\POTASSIUM CHLORIDE\SODIUM BICARBONATE\SODIUM CHLORIDE
     Indication: PRODUCT USED FOR UNKNOWN INDICATION
     Dosage: 2 UNK, BID
     Route: 048
  2. ENDONE [Concomitant]
     Active Substance: OXYCODONE HYDROCHLORIDE
     Indication: PRODUCT USED FOR UNKNOWN INDICATION
     Dosage: 5 MG, QID PRN
     Route: 048
  3. CANNABIS [Concomitant]
     Active Substance: CANNABIS SATIVA SUBSP. INDICA TOP
     Indication: SUBSTANCE USE
     Dosage: UNK
     Route: 065
  4. COCAINE [Concomitant]
     Active Substance: COCAINE
     Indication: SUBSTANCE USE
     Dosage: UNK
     Route: 065
  5. COLOXYL                            /00061602/ [Concomitant]
     Active Substance: DOCUSATE SODIUM
     Indication: PRODUCT USED FOR UNKNOWN INDICATION
     Dosage: 2 UNK, BID
     Route: 048
  6. PARACETAMOL [Concomitant]
     Active Substance: ACETAMINOPHEN
     Indication: PRODUCT USED FOR UNKNOWN INDICATION
     Dosage: 1 G, QID
     Route: 048
  7. CLONIDINE. [Concomitant]
     Active Substance: CLONIDINE
     Indication: PRODUCT USED FOR UNKNOWN INDICATION
     Dosage: 50 MCG, QID
     Route: 048
  8. ECSTASY [Concomitant]
     Active Substance: MIDOMAFETAMINE
     Indication: SUBSTANCE USE
     Dosage: UNK
     Route: 065
  9. METHAMPHETAMINE [Concomitant]
     Active Substance: METHAMPHETAMINE
     Indication: SUBSTANCE USE
     Dosage: UNK
     Route: 065
  10. AMPHETAMINE [Concomitant]
     Active Substance: AMPHETAMINE
     Indication: SUBSTANCE USE
     Dosage: UNK
     Route: 065
  11. STRENSIQ [Suspect]
     Active Substance: ASFOTASE ALFA
     Indication: HYPOPHOSPHATASIA
     Dosage: 60 MG/DL, SIX TIMES/WEEK
     Route: 058
     Dates: start: 20160128
  12. SENNA                              /00142201/ [Concomitant]
     Active Substance: SENNA LEAF
     Indication: PRODUCT USED FOR UNKNOWN INDICATION
     Dosage: 2 UNK, BID
     Route: 048

REACTIONS (19)
  - Coma [Recovered/Resolved]
  - Facial bones fracture [Unknown]
  - Urinary bladder rupture [Recovering/Resolving]
  - Walking distance test abnormal [Recovering/Resolving]
  - Blood phosphorus increased [Unknown]
  - Tibia fracture [Recovering/Resolving]
  - Lumbar vertebral fracture [Recovering/Resolving]
  - Oedema [Unknown]
  - Scoliosis [Unknown]
  - Spondylolisthesis [Unknown]
  - Blood alkaline phosphatase increased [Unknown]
  - Vitamin B6 increased [Unknown]
  - Ligament rupture [Unknown]
  - Soft tissue injury [Unknown]
  - Cervical vertebral fracture [Recovering/Resolving]
  - Extradural haematoma [Unknown]
  - Traumatic renal injury [Unknown]
  - Road traffic accident [Unknown]
  - Haematoma [Unknown]

NARRATIVE: CASE EVENT DATE: 20170719
